FAERS Safety Report 5979833-6 (Version None)
Quarter: 2008Q4

REPORT INFORMATION
  Report Type: 
  Country: None (occurrence: None)
  Receive Date: 20081128
  Receipt Date: 20081113
  Transmission Date: 20090506
  Serious: Yes (Death, Life-Threatening)
  Sender: FDA-Public Use
  Company Number: 001756

PATIENT
  Age: 44 Year
  Sex: Female

DRUGS (4)
  1. BUSULFEX [Suspect]
     Indication: STEM CELL TRANSPLANT
     Dosage: 26.8 ML, DAILY DOSE, INTRAVENOUS
     Route: 042
     Dates: start: 20070930, end: 20071001
  2. ATG (ANTILYMPHOCYTE IMMUNOGLOBULIN (HORSE)) [Concomitant]
  3. MELPHALAN (MELPHALAN) [Concomitant]
  4. TACROLIMUS [Concomitant]

REACTIONS (16)
  - ABDOMINAL DISCOMFORT [None]
  - ANOREXIA [None]
  - CONSTIPATION [None]
  - DIARRHOEA [None]
  - ENCEPHALITIS HERPES [None]
  - JAUNDICE [None]
  - MALAISE [None]
  - NAUSEA [None]
  - OROPHARYNGEAL PAIN [None]
  - PRURITUS [None]
  - PYREXIA [None]
  - RENAL IMPAIRMENT [None]
  - STAPHYLOCOCCAL SEPSIS [None]
  - THROMBOTIC MICROANGIOPATHY [None]
  - URTICARIA [None]
  - VOMITING [None]
